FAERS Safety Report 12280381 (Version 3)
Quarter: 2016Q3

REPORT INFORMATION
  Report Type: Spontaneous
  Country: IT (occurrence: IT)
  Receive Date: 20160419
  Receipt Date: 20160720
  Transmission Date: 20161109
  Serious: Yes (Hospitalization)
  Sender: FDA-Public Use
  Company Number: IT-PFIZER INC-2016209569

PATIENT
  Age: 55 Year
  Sex: Male

DRUGS (7)
  1. NATECAL D3 [Concomitant]
     Active Substance: CALCIUM CARBONATE\CHOLECALCIFEROL
  2. LEDERFOLIN [Concomitant]
     Active Substance: LEUCOVORIN CALCIUM
  3. LYRICA [Concomitant]
     Active Substance: PREGABALIN
  4. PANTORC [Concomitant]
     Active Substance: PANTOPRAZOLE SODIUM
  5. CYMBALTA [Concomitant]
     Active Substance: DULOXETINE HYDROCHLORIDE
  6. SUTENT [Suspect]
     Active Substance: SUNITINIB MALATE
     Indication: RENAL CANCER
     Dosage: 1 DF, DAILY
     Route: 048
     Dates: start: 20160205, end: 20160214
  7. MEDROL [Concomitant]
     Active Substance: METHYLPREDNISOLONE

REACTIONS (3)
  - Portal vein thrombosis [Recovering/Resolving]
  - Renal cancer [Recovering/Resolving]
  - Disease progression [Recovering/Resolving]

NARRATIVE: CASE EVENT DATE: 20160223
